FAERS Safety Report 5372831-5 (Version None)
Quarter: 2007Q2

REPORT INFORMATION
  Report Type: 
  Country: None (occurrence: None)
  Receive Date: 20070620
  Receipt Date: 20061128
  Transmission Date: 20071010
  Serious: Yes (Other)
  Sender: FDA-Public Use
  Company Number: 473041

PATIENT
  Age: 48 Year
  Sex: Female

DRUGS (2)
  1. INTERFERON ALFA (INTERFERON ALFA) [Suspect]
     Indication: CHRONIC MYELOID LEUKAEMIA
     Dosage: 3 MILLLIONIU DAILY SUBCUTANEOUS
     Route: 058
     Dates: start: 19940715
  2. HYDROXYUREA [Concomitant]

REACTIONS (2)
  - SARCOIDOSIS [None]
  - THROMBOCYTOPENIA [None]
